FAERS Safety Report 6855009-5 (Version None)
Quarter: 2010Q3

REPORT INFORMATION
  Report Type: 
  Country: None (occurrence: None)
  Receive Date: 20100717
  Receipt Date: 20080813
  Transmission Date: 20110219
  Serious: No
  Sender: FDA-Public Use
  Company Number: US-PFIZER INC-2007107334

PATIENT
  Sex: Female
  Weight: 53.181 kg

DRUGS (9)
  1. CHANTIX [Suspect]
     Indication: SMOKING CESSATION THERAPY
     Dates: start: 20071115
  2. LIPITOR [Concomitant]
     Route: 048
  3. LISINOPRIL [Concomitant]
     Route: 048
  4. ATENOLOL [Concomitant]
     Route: 048
  5. ACETYLSALICYLIC ACID [Concomitant]
  6. FISH OIL [Concomitant]
  7. CALCIUM [Concomitant]
     Route: 048
  8. ACTONEL [Concomitant]
     Route: 048
  9. VITAMINS [Concomitant]
     Route: 048

REACTIONS (5)
  - BODY HEIGHT DECREASED [None]
  - DEPRESSED MOOD [None]
  - DEPRESSION [None]
  - DRUG INTOLERANCE [None]
  - NAUSEA [None]
